FAERS Safety Report 5080070-0 (Version None)
Quarter: 2006Q3

REPORT INFORMATION
  Report Type: 
  Country: None (occurrence: None)
  Receive Date: 20060810
  Receipt Date: 20060726
  Transmission Date: 20061208
  Serious: Yes (Hospitalization)
  Sender: FDA-Public Use
  Company Number: WAES 0607USA05136

PATIENT
  Age: 59 Year
  Sex: Female
  Weight: 79.8331 kg

DRUGS (3)
  1. DECADRON [Suspect]
     Dosage: 4 MG/BID/PO
     Route: 048
  2. TEMODAR [Suspect]
     Indication: GLIOBLASTOMA MULTIFORME
     Dosage: 140 MG/DAILY/PO
     Route: 048
     Dates: start: 20060502, end: 20060613
  3. PREDNISONE [Suspect]
     Dosage: 40 MG/AM/

REACTIONS (8)
  - ABASIA [None]
  - ASTHENIA [None]
  - BLOOD GLUCOSE INCREASED [None]
  - FAECES DISCOLOURED [None]
  - HYPEROSMOLAR STATE [None]
  - NAUSEA [None]
  - ORAL INTAKE REDUCED [None]
  - RETCHING [None]
